FAERS Safety Report 5444430-8 (Version None)
Quarter: 2007Q3

REPORT INFORMATION
  Report Type: 
  Country: None (occurrence: None)
  Receive Date: 20070831
  Receipt Date: 20070828
  Transmission Date: 20080115
  Serious: Yes (Hospitalization)
  Sender: FDA-Public Use
  Company Number: CHPA2007US09074

PATIENT
  Age: 87 Year
  Sex: Female

DRUGS (1)
  1. BENEFIBER W/WHEAT DEXTRIN (NCH) (WHEAT DEXTRIN) CAPLET [Suspect]
     Dosage: BID
     Dates: start: 20070822

REACTIONS (2)
  - DEHYDRATION [None]
  - DIARRHOEA [None]
